FAERS Safety Report 4645641-1 (Version None)
Quarter: 2005Q2

REPORT INFORMATION
  Report Type: 
  Country: None (occurrence: None)
  Receive Date: 20050331
  Receipt Date: 20041208
  Transmission Date: 20051028
  Serious: No
  Sender: FDA-Public Use
  Company Number: 04P-163-0282651-00

PATIENT
  Age: 78 Year
  Sex: Female
  Weight: 65.7716 kg

DRUGS (8)
  1. HUMIRA [Suspect]
     Indication: RHEUMATOID ARTHRITIS
     Dosage: 40 MG, 1 IN 2 WK, SUBCUTANEOUS
     Route: 058
     Dates: start: 20030101, end: 20041101
  2. FLU SHOT [Concomitant]
  3. DIGOXIN [Concomitant]
  4. PREDNISONE [Concomitant]
  5. FUROSEMIDE [Concomitant]
  6. CELECOXIB [Concomitant]
  7. LORATADINE [Concomitant]
  8. AMLODIPINE BESYLATE [Concomitant]

REACTIONS (1)
  - NASOPHARYNGITIS [None]
